FAERS Safety Report 4286685-1 (Version None)
Quarter: 2004Q1

REPORT INFORMATION
  Report Type: 
  Country: None (occurrence: None)
  Receive Date: 20040204
  Receipt Date: 20040126
  Transmission Date: 20041129
  Serious: Yes (Hospitalization)
  Sender: FDA-Public Use
  Company Number: DE-JNJFOC-20040105292

PATIENT
  Sex: Male
  Weight: 48 kg

DRUGS (3)
  1. REMICADE [Suspect]
     Indication: CROHN'S DISEASE
     Dosage: 240 MG, INTRAVENOUS
     Route: 042
  2. PREDNISOLONE [Suspect]
     Indication: CROHN'S DISEASE
     Dosage: 50 MG, 1 IN 1 DAY, ORAL
     Route: 048
     Dates: start: 20021001
  3. MESALAZIN (MESALAZINE) TABLETS [Concomitant]

REACTIONS (7)
  - ABDOMINAL ABSCESS [None]
  - ABSCESS INTESTINAL [None]
  - FLUID RETENTION [None]
  - HAEMANGIOMA [None]
  - IMMUNOSUPPRESSION [None]
  - IMPAIRED GASTRIC EMPTYING [None]
  - SPLEEN DISORDER [None]
